FAERS Safety Report 22382842 (Version 1)
Quarter: 2023Q2

REPORT INFORMATION
  Report Type: Spontaneous
  Country: US (occurrence: None)
  Receive Date: 20230526
  Receipt Date: 20230526
  Transmission Date: 20230722
  Serious: No
  Sender: FDA-Public Use
  Company Number: None

PATIENT
  Sex: 0

DRUGS (1)
  1. FLONASE [Suspect]
     Active Substance: FLUTICASONE PROPIONATE
     Dosage: OTHER STRENGTH : SPRAYS;?FREQUENCY : DAILY;?OTHER ROUTE : IN EACH NOSTRIL;?
     Route: 050

REACTIONS (1)
  - Drug ineffective [None]
